FAERS Safety Report 23797577 (Version 1)
Quarter: 2024Q2

REPORT INFORMATION
  Report Type: Spontaneous
  Country: US (occurrence: US)
  Receive Date: 20240430
  Receipt Date: 20240430
  Transmission Date: 20240716
  Serious: No
  Sender: FDA-Public Use
  Company Number: US-JNJFOC-20240450190

PATIENT
  Age: 51 Year
  Sex: Female
  Weight: 54.4 kg

DRUGS (15)
  1. TYLENOL [Suspect]
     Active Substance: ACETAMINOPHEN
     Indication: Headache
     Dosage: 6 TIMES A DAY
     Route: 048
     Dates: start: 20231116
  2. ORENITRAM [Concomitant]
     Active Substance: TREPROSTINIL
     Indication: Pulmonary arterial hypertension
     Dosage: EXTENDED RELEASE TABLET, UNK MG
     Route: 065
     Dates: start: 20170403
  3. ORENITRAM [Concomitant]
     Active Substance: TREPROSTINIL
     Dosage: EXTENDED RELEASE TABLET, 5 MG
     Route: 048
     Dates: start: 202311, end: 202311
  4. ORENITRAM [Concomitant]
     Active Substance: TREPROSTINIL
     Dosage: EXTENDED RELEASE TABLET, 2.5 MG?UNKNOWN FREQUENCY
     Route: 048
     Dates: start: 202311
  5. ORENITRAM [Concomitant]
     Active Substance: TREPROSTINIL
     Dosage: EXTENDED RELEASE TABLET, 0.25 MG
     Route: 065
  6. ORENITRAM [Concomitant]
     Active Substance: TREPROSTINIL
     Route: 048
     Dates: start: 2023
  7. ORENITRAM [Concomitant]
     Active Substance: TREPROSTINIL
     Route: 048
     Dates: start: 202401
  8. ORENITRAM [Concomitant]
     Active Substance: TREPROSTINIL
     Route: 048
     Dates: start: 20240123
  9. ORENITRAM [Concomitant]
     Active Substance: TREPROSTINIL
     Route: 048
  10. SPIRONOLACTONE [Concomitant]
     Active Substance: SPIRONOLACTONE
     Indication: Product used for unknown indication
     Route: 065
  11. ADCIRCA [Concomitant]
     Active Substance: TADALAFIL
     Indication: Product used for unknown indication
     Route: 065
  12. OXYGEN [Concomitant]
     Active Substance: OXYGEN
     Indication: Product used for unknown indication
     Route: 065
  13. AMBRISENTAN [Concomitant]
     Active Substance: AMBRISENTAN
     Indication: Product used for unknown indication
     Route: 065
  14. TORSEMIDE [Concomitant]
     Active Substance: TORSEMIDE
     Indication: Product used for unknown indication
     Route: 065
  15. ACETAMINOPHEN [Concomitant]
     Active Substance: ACETAMINOPHEN
     Indication: Product used for unknown indication
     Route: 065

REACTIONS (2)
  - Overdose [Unknown]
  - Product use in unapproved indication [Unknown]

NARRATIVE: CASE EVENT DATE: 20231116
